FAERS Safety Report 6680304-2 (Version None)
Quarter: 2010Q2

REPORT INFORMATION
  Report Type: 
  Country: None (occurrence: None)
  Receive Date: 20100409
  Receipt Date: 20100326
  Transmission Date: 20101027
  Serious: Yes (Hospitalization)
  Sender: FDA-Public Use
  Company Number: DSU-2010-01202

PATIENT
  Sex: Male

DRUGS (1)
  1. OLMESARTAN MEDOXOMIL [Suspect]
     Indication: CARDIAC ARREST
     Dosage: 20 MG (20 MG, QD), PER ORAL; (20 MG), PER ORAL
     Route: 048
     Dates: start: 20090801

REACTIONS (3)
  - BLOOD PRESSURE INCREASED [None]
  - CARDIAC ARREST [None]
  - DRUG DOSE OMISSION [None]
